FAERS Safety Report 7313925-4 (Version None)
Quarter: 2011Q1

REPORT INFORMATION
  Report Type: 
  Country: None (occurrence: None)
  Receive Date: 20110215
  Receipt Date: 20110202
  Transmission Date: 20110831
  Serious: Yes (Disabling)
  Sender: FDA-Public Use
  Company Number: 20110092

PATIENT
  Age: 67 Year
  Sex: Female

DRUGS (2)
  1. DEXAMETHASONE SODIUM PHOSPHATE INJECTION, USP (4930-25) 4 MG/ML [Suspect]
     Indication: ARTHRITIS
     Dosage: 4 MG INTRA-ARTICULAR
     Route: 014
     Dates: start: 20101005
  2. DEXAMETHASONE SODIUM PHOSPHATE INJECTION, USP (4930-25) 4 MG/ML [Suspect]
     Indication: ARTHRALGIA
     Dosage: 4 MG INTRA-ARTICULAR
     Route: 014
     Dates: start: 20101005

REACTIONS (6)
  - INJECTION SITE WARMTH [None]
  - IMPAIRED HEALING [None]
  - INJECTION SITE SWELLING [None]
  - INJECTION SITE ULCER [None]
  - INJECTION SITE PAIN [None]
  - INJECTION SITE ERYTHEMA [None]
